FAERS Safety Report 4617954-0 (Version None)
Quarter: 2005Q1

REPORT INFORMATION
  Report Type: 
  Country: None (occurrence: None)
  Receive Date: 20050322
  Receipt Date: 20050314
  Transmission Date: 20050727
  Serious: Yes (Hospitalization)
  Sender: FDA-Public Use
  Company Number: 200415118BCC

PATIENT
  Age: 16 Year
  Sex: Female
  Weight: 54.8852 kg

DRUGS (1)
  1. MIDOL [Suspect]
     Indication: DYSMENORRHOEA
     Dosage: BID, ORAL; PRN, ORAL
     Route: 048
     Dates: start: 19790807

REACTIONS (5)
  - COMA [None]
  - DEPRESSED LEVEL OF CONSCIOUSNESS [None]
  - DUODENAL ULCER [None]
  - GASTRIC PERFORATION [None]
  - SHOCK [None]
